FAERS Safety Report 7758823-7 (Version None)
Quarter: 2011Q3

REPORT INFORMATION
  Report Type: 
  Country: None (occurrence: None)
  Receive Date: 20110919
  Receipt Date: 20110909
  Transmission Date: 20111222
  Serious: Yes (Other)
  Sender: FDA-Public Use
  Company Number: NL-AMGEN-NLDSP2011034915

PATIENT
  Age: 62 Year
  Sex: Female
  Weight: 64 kg

DRUGS (9)
  1. NAPROXEN [Concomitant]
     Dosage: 500 MG, 1X/DAY
  2. ACTONEL [Concomitant]
     Dosage: 35 MG, WEEKLY
  3. CALCIUM CARBONATE [Concomitant]
     Dosage: 1 DF, 1X/DAY
  4. PANTOZOL                           /01263202/ [Concomitant]
     Dosage: 20 MG, QD
  5. MOVICOLON [Concomitant]
     Dosage: 1 DF, 1X/DAY
  6. MULTI-VITAMINS [Concomitant]
     Dosage: 1 DF, 1X/DAY
  7. DEVARON [Concomitant]
  8. ENBREL [Suspect]
     Indication: RHEUMATOID ARTHRITIS
     Dosage: 50 MG, WEEKLY
     Dates: start: 20080101, end: 20101001
  9. FOSAMAX [Concomitant]
     Dosage: 35 MG, WEEKLY

REACTIONS (4)
  - ARTHRALGIA [None]
  - GAMMA-GLUTAMYLTRANSFERASE INCREASED [None]
  - CHOLESTASIS [None]
  - TRANSAMINASES INCREASED [None]
